FAERS Safety Report 10967593 (Version 1)
Quarter: 2015Q1

REPORT INFORMATION
  Report Type: Other
  Country: GB (occurrence: GB)
  Receive Date: 20150330
  Receipt Date: 20150330
  Transmission Date: 20150721
  Serious: Yes (Other)
  Sender: FDA-Public Use
  Company Number: GB-MYLANLABS-2015M1008595

PATIENT

DRUGS (4)
  1. CITALOPRAM [Concomitant]
     Active Substance: CITALOPRAM HYDROBROMIDE
     Dosage: 8 MG, QD
     Route: 048
  2. LITHIUM CITRATE. [Concomitant]
     Active Substance: LITHIUM CITRATE
     Dosage: 12.5 ML, QD (TAKEN AT NIGHT.)
     Route: 048
  3. BACLOFEN. [Suspect]
     Active Substance: BACLOFEN
     Indication: MUSCLE SPASTICITY
     Dosage: 10 MG, TID (RECIEVED 5 DOSES.)
     Route: 048
     Dates: start: 20150223, end: 20150224
  4. LANSOPRAZOLE. [Concomitant]
     Active Substance: LANSOPRAZOLE
     Dosage: 30 MG, QD
     Route: 048

REACTIONS (2)
  - Confusional state [Recovered/Resolved]
  - Incontinence [Recovered/Resolved]

NARRATIVE: CASE EVENT DATE: 20150223
